FAERS Safety Report 25308751 (Version 2)
Quarter: 2025Q3

REPORT INFORMATION
  Report Type: Spontaneous
  Country: US (occurrence: US)
  Receive Date: 20250513
  Receipt Date: 20250705
  Transmission Date: 20251020
  Serious: No
  Sender: SANOFI AVENTIS
  Company Number: US-SA-2025SA135460

PATIENT
  Age: 6 Year
  Sex: Female

DRUGS (1)
  1. DUPIXENT [Suspect]
     Active Substance: DUPILUMAB
     Indication: Dermatitis atopic
     Dosage: 300 MG, Q4W
     Route: 058
     Dates: start: 20230922

REACTIONS (4)
  - Hypersensitivity [Recovering/Resolving]
  - Nasal congestion [Recovering/Resolving]
  - Rhinorrhoea [Recovering/Resolving]
  - Product storage error [Unknown]

NARRATIVE: CASE EVENT DATE: 20250505
